FAERS Safety Report 7100073-1 (Version None)
Quarter: 2010Q4

REPORT INFORMATION
  Report Type: 
  Country: None (occurrence: None)
  Receive Date: 20101112
  Receipt Date: 20090929
  Transmission Date: 20110411
  Serious: No
  Sender: FDA-Public Use
  Company Number: A0808674A

PATIENT
  Age: 81 Year
  Sex: Male

DRUGS (7)
  1. COREG [Suspect]
     Indication: HYPERTENSION
     Dosage: 6.25MG TWICE PER DAY
     Route: 048
     Dates: start: 20080101
  2. LISINOPRIL [Concomitant]
     Dates: end: 20090912
  3. MSM [Concomitant]
  4. CHONDROITIN [Concomitant]
  5. GLUCOSAMINE [Concomitant]
  6. ASPIRIN [Concomitant]
  7. METOPROLOL [Concomitant]
     Dates: end: 20080101

REACTIONS (2)
  - DIZZINESS [None]
  - HYPERTENSION [None]
